FAERS Safety Report 15183126 (Version 1)
Quarter: 2018Q4

REPORT INFORMATION
  Report Type: Spontaneous
  Country: US (occurrence: US)
  Receive Date: 20180723
  Receipt Date: 20180723
  Transmission Date: 20190204
  Serious: No
  Sender: FDA-Public Use
  Company Number: US-AYTU BIOSCIENCES, INC.-2017AYT000138

PATIENT

DRUGS (1)
  1. NATESTO [Suspect]
     Active Substance: TESTOSTERONE
     Indication: PRODUCT USED FOR UNKNOWN INDICATION
     Dosage: UNK, TID
     Route: 045
     Dates: start: 20171125, end: 20171130

REACTIONS (8)
  - Product odour abnormal [Unknown]
  - Nasal congestion [Recovered/Resolved]
  - Rhinorrhoea [Unknown]
  - Product taste abnormal [Unknown]
  - Headache [Unknown]
  - Epistaxis [Unknown]
  - Nasal discomfort [Unknown]
  - Throat irritation [Unknown]

NARRATIVE: CASE EVENT DATE: 2017
